FAERS Safety Report 19817028 (Version 2)
Quarter: 2021Q3

REPORT INFORMATION
  Report Type: Spontaneous
  Country: FR (occurrence: FR)
  Receive Date: 20210910
  Receipt Date: 20210920
  Transmission Date: 20211014
  Serious: Yes (Hospitalization, Other)
  Sender: FDA-Public Use
  Company Number: FR-TEVA-2021-FR-1950984

PATIENT
  Age: 83 Year
  Sex: Female

DRUGS (1)
  1. PREGABALINE TEVA SANTE [Suspect]
     Active Substance: PREGABALIN
     Indication: ARTHRALGIA
     Dates: start: 20210403, end: 20210417

REACTIONS (10)
  - Amnesia [Not Recovered/Not Resolved]
  - Disorientation [Recovering/Resolving]
  - Seizure [Recovering/Resolving]
  - Meningitis herpes [Recovering/Resolving]
  - Memory impairment [Not Recovered/Not Resolved]
  - Tremor [Unknown]
  - Fatigue [Recovering/Resolving]
  - Confusional state [Recovering/Resolving]
  - Product use issue [Unknown]
  - Herpes simplex test positive [Recovering/Resolving]

NARRATIVE: CASE EVENT DATE: 202104
